FAERS Safety Report 9526963 (Version 2)
Quarter: 2013Q4

REPORT INFORMATION
  Report Type: Spontaneous
  Country: US (occurrence: US)
  Receive Date: 20130916
  Receipt Date: 20131004
  Transmission Date: 20140711
  Serious: Yes (Other)
  Sender: FDA-Public Use
  Company Number: CHPA2013US014040

PATIENT
  Age: 67 Year
  Sex: Female

DRUGS (2)
  1. DESENEX [Suspect]
     Indication: RASH
     Dosage: 2 OR MORE TIMES, QD
     Route: 061
  2. COUMADIN//WARFARIN SODIUM [Concomitant]
     Indication: CARDIAC DISORDER
     Route: 048

REACTIONS (6)
  - Osteoporosis [Not Recovered/Not Resolved]
  - Rash [Not Recovered/Not Resolved]
  - Incorrect drug administration duration [Unknown]
  - Therapeutic response unexpected [Unknown]
  - Drug administered at inappropriate site [Unknown]
  - Incorrect dose administered [Unknown]
